FAERS Safety Report 24368159 (Version 4)
Quarter: 2024Q4

REPORT INFORMATION
  Report Type: Spontaneous
  Country: CZ (occurrence: CZ)
  Receive Date: 20240926
  Receipt Date: 20241004
  Transmission Date: 20250115
  Serious: Yes (Other)
  Sender: SANDOZ
  Company Number: CZ-MYLANLABS-2019M1121241

PATIENT
  Age: 66 Year
  Sex: Female

DRUGS (22)
  1. CAPECITABINE [Suspect]
     Active Substance: CAPECITABINE
     Indication: Chemotherapy
     Dosage: UNK
     Route: 048
     Dates: start: 20131219
  2. CAPECITABINE [Suspect]
     Active Substance: CAPECITABINE
     Indication: Breast cancer
  3. CYCLOPHOSPHAMIDE [Suspect]
     Active Substance: CYCLOPHOSPHAMIDE
     Indication: Breast cancer
     Dosage: UNK
     Route: 065
  4. DOCETAXEL [Suspect]
     Active Substance: DOCETAXEL
     Indication: Breast cancer
     Dosage: 2 CYCLES
     Route: 042
  5. DOCETAXEL [Suspect]
     Active Substance: DOCETAXEL
     Dosage: 2 CYCLES
     Route: 065
  6. DOXORUBICIN HYDROCHLORIDE [Suspect]
     Active Substance: DOXORUBICIN HYDROCHLORIDE
     Indication: Breast cancer
     Dosage: NEOADJUVANT CHEMOTHERAPY - 6 CYCLES
     Route: 042
  7. EXEMESTANE [Suspect]
     Active Substance: EXEMESTANE
     Indication: Hormone therapy
     Dosage: UNK
     Route: 065
     Dates: start: 2019
  8. EXEMESTANE [Suspect]
     Active Substance: EXEMESTANE
     Indication: Breast cancer
  9. LETROZOLE [Suspect]
     Active Substance: LETROZOLE
     Indication: Breast cancer
     Dosage: UNK
     Route: 048
     Dates: start: 2019
  10. LETROZOLE [Suspect]
     Active Substance: LETROZOLE
     Indication: Breast cancer metastatic
     Dosage: UNK
     Route: 048
  11. LETROZOLE [Suspect]
     Active Substance: LETROZOLE
     Dosage: UNK
     Route: 048
     Dates: start: 20131203
  12. LETROZOLE [Suspect]
     Active Substance: LETROZOLE
     Dosage: UNK
     Route: 065
  13. LAPATINIB [Suspect]
     Active Substance: LAPATINIB
     Indication: Breast cancer metastatic
     Dosage: UNK
     Route: 065
     Dates: start: 20140203
  14. LAPATINIB [Suspect]
     Active Substance: LAPATINIB
     Indication: Breast cancer
  15. LAPATINIB [Suspect]
     Active Substance: LAPATINIB
     Indication: Chemotherapy
  16. PACLITAXEL [Suspect]
     Active Substance: PACLITAXEL
     Indication: Breast cancer metastatic
     Dosage: UNK, (FIRST CYCLE)UNK
     Route: 042
     Dates: start: 20130911
  17. PACLITAXEL [Suspect]
     Active Substance: PACLITAXEL
     Dosage: UNK, (SECOND CYCLE)
     Route: 042
     Dates: start: 20131003
  18. TRASTUZUMAB [Suspect]
     Active Substance: TRASTUZUMAB
     Indication: Breast cancer
     Dosage: UNK, (FIRST CYCLE)
     Route: 042
     Dates: start: 20130911
  19. TRASTUZUMAB [Suspect]
     Active Substance: TRASTUZUMAB
     Dosage: UNK, (SECOND CYCLE)
     Route: 042
     Dates: start: 20131003
  20. VINORELBINE [Suspect]
     Active Substance: VINORELBINE TARTRATE
     Indication: Breast cancer
     Dosage: UNK
     Route: 065
  21. TAMOXIFEN [Concomitant]
     Active Substance: TAMOXIFEN
     Indication: Breast cancer
     Dosage: UNK
     Route: 065
  22. TAMOXIFEN [Concomitant]
     Active Substance: TAMOXIFEN
     Dosage: UNK
     Route: 065

REACTIONS (9)
  - Malignant neoplasm progression [Unknown]
  - Erysipelas [Unknown]
  - Subclavian vein thrombosis [Unknown]
  - Disease progression [Unknown]
  - Hypersensitivity [Unknown]
  - Neuropathy peripheral [Not Recovered/Not Resolved]
  - Breast cancer metastatic [Recovering/Resolving]
  - Haematotoxicity [Unknown]
  - Adverse drug reaction [Unknown]
